FAERS Safety Report 7277588-9 (Version None)
Quarter: 2011Q1

REPORT INFORMATION
  Report Type: 
  Country: None (occurrence: None)
  Receive Date: 20110207
  Receipt Date: 20110207
  Transmission Date: 20110831
  Serious: Yes (Hospitalization, Other)
  Sender: FDA-Public Use
  Company Number: JP-ELI_LILLY_AND_COMPANY-JP201009000418

PATIENT
  Age: 78 Year
  Sex: Male

DRUGS (2)
  1. INSULIN [Concomitant]
     Indication: TYPE 2 DIABETES MELLITUS
     Dosage: 16 IU, 2/D
     Route: 058
  2. HUMULIN 70/30 [Suspect]
     Indication: TYPE 2 DIABETES MELLITUS
     Dosage: 18 IU, DAILY (1/D)
     Route: 058

REACTIONS (4)
  - BRAIN CONTUSION [None]
  - HYPERPHAGIA [None]
  - HYPOGLYCAEMIA [None]
  - SUBDURAL HAEMATOMA [None]
